FAERS Safety Report 7023261-1 (Version None)
Quarter: 2010Q3

REPORT INFORMATION
  Report Type: 
  Country: None (occurrence: None)
  Receive Date: 20100930
  Receipt Date: 20100923
  Transmission Date: 20110219
  Serious: Yes (Hospitalization, Other)
  Sender: FDA-Public Use
  Company Number: TW-ABBOTT-10P-153-0671913-00

PATIENT
  Age: 35 Year
  Sex: Female

DRUGS (3)
  1. ERYTHROMYCIN [Suspect]
     Indication: BRONCHITIS
     Route: 065
  2. CAFERGOT [Interacting]
     Indication: MIGRAINE
     Route: 065
  3. MACROLIDES [Interacting]
     Indication: BRONCHITIS

REACTIONS (3)
  - CONDITION AGGRAVATED [None]
  - DRUG INTERACTION [None]
  - ERGOT POISONING [None]
